FAERS Safety Report 7268237-4 (Version None)
Quarter: 2011Q1

REPORT INFORMATION
  Report Type: 
  Country: None (occurrence: None)
  Receive Date: 20110201
  Receipt Date: 20110128
  Transmission Date: 20110831
  Serious: Yes (Death, Other)
  Sender: FDA-Public Use
  Company Number: PHHY2011JP06959

PATIENT
  Age: 70 Year
  Sex: Female

DRUGS (1)
  1. CYCLOSPORINE [Suspect]
     Indication: HEPATITIS E
     Dosage: UNK
     Dates: start: 20100401

REACTIONS (6)
  - PNEUMONIA [None]
  - HEPATITIS E [None]
  - ADRENALITIS [None]
  - PANCREATITIS NECROTISING [None]
  - HEPATITIS FULMINANT [None]
  - CYTOMEGALOVIRUS INFECTION [None]
